FAERS Safety Report 9978549 (Version 1)
Quarter: 2014Q1

REPORT INFORMATION
  Report Type: Report from Study
  Country: US (occurrence: US)
  Receive Date: 20140306
  Receipt Date: 20140306
  Transmission Date: 20141002
  Serious: No
  Sender: FDA-Public Use
  Company Number: US-ABBVIE-13P-163-1173438-00

PATIENT
  Age: 35 Year
  Sex: Female

DRUGS (7)
  1. HUMIRA [Suspect]
     Indication: CROHN^S DISEASE
     Dates: start: 201309
  2. HUMIRA [Suspect]
     Indication: SPONDYLITIS
  3. PRILOSEC [Concomitant]
     Indication: GASTROOESOPHAGEAL REFLUX DISEASE
  4. VITAMINS [Concomitant]
     Indication: VITAMIN SUPPLEMENTATION
  5. PRENATAL VITAMINS [Concomitant]
     Indication: VITAMIN SUPPLEMENTATION
  6. LEXAPRO [Concomitant]
     Indication: POST-TRAUMATIC STRESS DISORDER
  7. LEXAPRO [Concomitant]
     Indication: DEPRESSION

REACTIONS (14)
  - Increased upper airway secretion [Not Recovered/Not Resolved]
  - Dysphonia [Not Recovered/Not Resolved]
  - Oropharyngeal pain [Not Recovered/Not Resolved]
  - Local swelling [Not Recovered/Not Resolved]
  - Local swelling [Not Recovered/Not Resolved]
  - Joint swelling [Not Recovered/Not Resolved]
  - Wound complication [Not Recovered/Not Resolved]
  - Breakthrough pain [Not Recovered/Not Resolved]
  - Influenza like illness [Not Recovered/Not Resolved]
  - Chest pain [Not Recovered/Not Resolved]
  - Chest discomfort [Not Recovered/Not Resolved]
  - Cough [Not Recovered/Not Resolved]
  - Arthralgia [Not Recovered/Not Resolved]
  - Rash [Not Recovered/Not Resolved]
